FAERS Safety Report 5620579-1 (Version None)
Quarter: 2008Q1

REPORT INFORMATION
  Report Type: 
  Country: None (occurrence: None)
  Receive Date: 20080208
  Receipt Date: 20080131
  Transmission Date: 20080703
  Serious: Yes (Other)
  Sender: FDA-Public Use
  Company Number: JP-BAYER-200810188BYL

PATIENT
  Age: 67 Year
  Sex: Male

DRUGS (2)
  1. CIPROXAN-I.V. [Suspect]
     Indication: PNEUMONIA ASPIRATION
     Dosage: TOTAL DAILY DOSE: 600 MG
     Route: 042
     Dates: start: 20080125, end: 20080130
  2. NEOPAREN [Concomitant]
     Route: 042

REACTIONS (1)
  - HYPOGLYCAEMIA [None]
